FAERS Safety Report 21658993 (Version 2)
Quarter: 2022Q4

REPORT INFORMATION
  Report Type: Spontaneous
  Country: US (occurrence: US)
  Receive Date: 20221129
  Receipt Date: 20221130
  Transmission Date: 20230113
  Serious: Yes (Other)
  Sender: FDA-Public Use
  Company Number: US-BAYER-2022A162558

PATIENT
  Age: 30 Year
  Sex: Female

DRUGS (1)
  1. MIRENA [Suspect]
     Active Substance: LEVONORGESTREL
     Indication: Contraception
     Dosage: 20?G/DAY
     Route: 015
     Dates: start: 202208

REACTIONS (5)
  - Uterine perforation [None]
  - Genital haemorrhage [None]
  - Procedural pain [None]
  - Complication of device insertion [None]
  - Pelvic pain [None]

NARRATIVE: CASE EVENT DATE: 20220801
